FAERS Safety Report 6142183-1 (Version None)
Quarter: 2009Q2

REPORT INFORMATION
  Report Type: 
  Country: None (occurrence: None)
  Receive Date: 20090402
  Receipt Date: 20090326
  Transmission Date: 20091009
  Serious: Yes (Other)
  Sender: FDA-Public Use
  Company Number: GB-JNJCH-2009003517

PATIENT
  Sex: Female

DRUGS (3)
  1. NICORETTE [Suspect]
     Indication: SMOKING CESSATION THERAPY
     Dosage: TEXT:ONE PATCH A DAY
     Route: 062
     Dates: start: 20081126, end: 20090205
  2. NICORETTE [Suspect]
     Indication: SMOKING CESSATION THERAPY
     Dosage: TEXT:ONE PATCH A DAY
     Route: 062
     Dates: start: 20081126, end: 20090205
  3. NICOTINE [Suspect]
     Indication: SMOKING CESSATION THERAPY
     Dosage: TEXT:ONE PATCH A DAY
     Route: 062

REACTIONS (1)
  - POLYMYALGIA RHEUMATICA [None]
